FAERS Safety Report 10948426 (Version 1)
Quarter: 2015Q1

REPORT INFORMATION
  Report Type: Spontaneous
  Country: BR (occurrence: None)
  Receive Date: 20150320
  Receipt Date: 20150320
  Transmission Date: 20150721
  Serious: Yes (Death, Hospitalization, Other)
  Sender: FDA-Public Use
  Company Number: ADR-2015-00542

PATIENT
  Age: 67 Year
  Sex: Male

DRUGS (8)
  1. CLINDAMYCIN [Suspect]
     Active Substance: CLINDAMYCIN\CLINDAMYCIN PHOSPHATE
  2. BACLOFEN. [Suspect]
     Active Substance: BACLOFEN
     Indication: TETANUS
     Dates: start: 201309
  3. DIAZEPAM. [Suspect]
     Active Substance: DIAZEPAM
  4. CEFTRIAXONE. [Suspect]
     Active Substance: CEFTRIAXONE
  5. MIDAZOLAM [Suspect]
     Active Substance: MIDAZOLAM\MIDAZOLAM HYDROCHLORIDE
  6. PENICILLIN [Suspect]
     Active Substance: PENICILLIN
  7. METRONIDAZOLE. [Suspect]
     Active Substance: METRONIDAZOLE
     Route: 042
  8. TETANUS IMMUNOGLOBULIN [Suspect]
     Active Substance: HUMAN CLOSTRIDIUM TETANI TOXOID IMMUNE GLOBULIN
     Indication: TETANUS
     Dates: start: 201309

REACTIONS (4)
  - Muscle spasms [None]
  - Infection [None]
  - Septic shock [None]
  - No therapeutic response [None]

NARRATIVE: CASE EVENT DATE: 20130830
